FAERS Safety Report 9361085 (Version 1)
Quarter: 2013Q2

REPORT INFORMATION
  Report Type: Spontaneous
  Country: US (occurrence: None)
  Receive Date: 20130618
  Receipt Date: 20130618
  Transmission Date: 20140414
  Serious: Yes (Other)
  Sender: FDA-Public Use
  Company Number: 2013P1007218

PATIENT
  Age: 75 Year
  Sex: Female

DRUGS (1)
  1. DOXYCYCLINE [Suspect]
     Indication: CELLULITIS
     Route: 048

REACTIONS (2)
  - Burns second degree [None]
  - Photosensitivity reaction [None]
